FAERS Safety Report 8602250-7 (Version None)
Quarter: 2012Q3

REPORT INFORMATION
  Report Type: 
  Country: None (occurrence: None)
  Receive Date: 20120817
  Receipt Date: 20120814
  Transmission Date: 20120928
  Serious: Yes (Death, Hospitalization)
  Sender: FDA-Public Use
  Company Number: IT-SHIRE-SPV1-2012-00548

PATIENT
  Sex: Female

DRUGS (6)
  1. ALLOPURINOL [Suspect]
     Indication: HYPERURICAEMIA
     Dosage: 300 MG, 1X/DAY:QD
     Route: 048
     Dates: start: 20091001, end: 20120602
  2. ANAGRELIDE HYDROCHLORIDE [Suspect]
     Indication: THROMBOCYTOSIS
     Dosage: 1.5 MG, 1X/DAY:QD
     Route: 048
     Dates: start: 20100204, end: 20120602
  3. OLMESARTAN MEDOXOMIL [Concomitant]
     Indication: PRODUCT USED FOR UNKNOWN INDICATION
     Dosage: 40 MG, UNKNOWN
     Route: 048
     Dates: start: 20110101
  4. SEACOR [Concomitant]
     Indication: PRODUCT USED FOR UNKNOWN INDICATION
     Dosage: UNK, UNKNOWN
     Route: 048
  5. LANSOPRAZOLO [Concomitant]
     Indication: PRODUCT USED FOR UNKNOWN INDICATION
     Dosage: 30 MG, UNKNOWN
     Route: 048
     Dates: start: 20091001
  6. ASPIRIN [Suspect]
     Indication: THROMBOSIS PROPHYLAXIS
     Dosage: 100 MG, 1X/DAY:QD
     Route: 048
     Dates: start: 20091001, end: 20120602

REACTIONS (1)
  - TOXIC EPIDERMAL NECROLYSIS [None]
